FAERS Safety Report 11839871 (Version 3)
Quarter: 2016Q1

REPORT INFORMATION
  Report Type: Spontaneous
  Country: US (occurrence: US)
  Receive Date: 20151216
  Receipt Date: 20160311
  Transmission Date: 20160525
  Serious: Yes (Hospitalization, Other)
  Sender: FDA-Public Use
  Company Number: US-PFIZER INC-2015445156

PATIENT
  Age: 56 Year
  Sex: Female

DRUGS (3)
  1. EFFEXOR XR [Suspect]
     Active Substance: VENLAFAXINE HYDROCHLORIDE
     Dosage: 18.75 MG, 1X/DAY (37.5MG/1/2 OF DOSE)
  2. KLONOPIN [Concomitant]
     Active Substance: CLONAZEPAM
     Dosage: ? TABLET
  3. EFFEXOR XR [Suspect]
     Active Substance: VENLAFAXINE HYDROCHLORIDE
     Indication: CONCUSSION
     Dosage: 37.5 MG, 1X/DAY
     Dates: start: 2006

REACTIONS (13)
  - Drug withdrawal syndrome [Not Recovered/Not Resolved]
  - Agitation [Unknown]
  - Confusional state [Unknown]
  - Activities of daily living impaired [Unknown]
  - Seizure [Unknown]
  - Irritability [Unknown]
  - Anxiety [Unknown]
  - Panic reaction [Unknown]
  - Impaired driving ability [Unknown]
  - Visual impairment [Unknown]
  - Malaise [Unknown]
  - Product use issue [Unknown]
  - Dizziness [Unknown]
